FAERS Safety Report 6055195-3 (Version None)
Quarter: 2009Q1

REPORT INFORMATION
  Report Type: 
  Country: None (occurrence: None)
  Receive Date: 20090122
  Receipt Date: 20090107
  Transmission Date: 20090719
  Serious: Yes (Hospitalization)
  Sender: FDA-Public Use
  Company Number: 8041025

PATIENT
  Sex: Female
  Weight: 59.5 kg

DRUGS (10)
  1. KEPPRA [Suspect]
     Indication: CONVULSION
     Dosage: 1250 MG /D
     Dates: start: 20060101
  2. KEPPRA [Suspect]
     Indication: CONVULSION
     Dosage: 2.5 ML 3/D
  3. KEPPRA [Suspect]
     Indication: CONVULSION
     Dosage: 5 ML /D
  4. KEPPRA [Suspect]
     Indication: CONVULSION
     Dosage: 1000 MG /D
     Dates: start: 20081219
  5. DEPAKOTE [Concomitant]
  6. XANAX [Concomitant]
  7. SENOKOT [Concomitant]
  8. ATROVENT [Concomitant]
  9. COREG [Concomitant]
  10. XOPENEX [Concomitant]

REACTIONS (6)
  - CONVULSION [None]
  - INCORRECT DOSE ADMINISTERED [None]
  - INCORRECT ROUTE OF DRUG ADMINISTRATION [None]
  - MENTAL STATUS CHANGES [None]
  - URINARY TRACT INFECTION [None]
  - WRONG TECHNIQUE IN DRUG USAGE PROCESS [None]
